FAERS Safety Report 7622594-5 (Version None)
Quarter: 2011Q3

REPORT INFORMATION
  Report Type: 
  Country: None (occurrence: None)
  Receive Date: 20110712
  Receipt Date: 20100629
  Transmission Date: 20111222
  Serious: Yes (Death, Other)
  Sender: FDA-Public Use
  Company Number: 2010AP001083

PATIENT
  Age: 42 Year
  Sex: Male

DRUGS (2)
  1. METFORMIN HCL [Suspect]
     Indication: DIABETES MELLITUS
     Dosage: 500 MG, BID;
  2. CREATINE (CREATINE) [Suspect]
     Indication: MUSCLE BUILDING THERAPY
     Dosage: 5 G; PO, QID, 5 G QD, PO
     Route: 048

REACTIONS (10)
  - MALAISE [None]
  - RESPIRATORY DISTRESS [None]
  - DECREASED APPETITE [None]
  - LACTIC ACIDOSIS [None]
  - CARDIAC ARREST [None]
  - PULMONARY OEDEMA [None]
  - RENAL FAILURE ACUTE [None]
  - BLOOD GLUCOSE INCREASED [None]
  - HAEMODIALYSIS [None]
  - SOMNOLENCE [None]
